FAERS Safety Report 23432755 (Version 1)
Quarter: 2024Q1

REPORT INFORMATION
  Report Type: Other
  Country: None (occurrence: IN)
  Receive Date: 20240123
  Receipt Date: 20240123
  Transmission Date: 20240409
  Serious: Yes (Hospitalization, Other)
  Sender: FDA-Public Use
  Company Number: IN-Creekwood Pharmaceuticals LLC-2151841

PATIENT
  Age: 8 Year
  Sex: Female
  Weight: 22 kg

DRUGS (1)
  1. PREGABALIN [Suspect]
     Active Substance: PREGABALIN
     Indication: Product used for unknown indication
     Route: 048

REACTIONS (4)
  - Toxic encephalopathy [Recovering/Resolving]
  - Toxicity to various agents [Recovering/Resolving]
  - Accidental exposure to product by child [Unknown]
  - Accidental overdose [Unknown]
